FAERS Safety Report 5145266-8 (Version None)
Quarter: 2006Q4

REPORT INFORMATION
  Report Type: 
  Country: None (occurrence: None)
  Receive Date: 20061101
  Receipt Date: 20061011
  Transmission Date: 20070319
  Serious: Yes (Hospitalization)
  Sender: FDA-Public Use
  Company Number: GB200608006433

PATIENT
  Age: 48 Year
  Sex: Female

DRUGS (2)
  1. CYMBALTA [Suspect]
     Indication: DEPRESSION
     Dosage: 60 MG, DAILY (1/D), ORAL; SEE IMAGE
     Route: 048
     Dates: start: 20060707, end: 20060901
  2. CYMBALTA [Suspect]
     Indication: DEPRESSION
     Dosage: 60 MG, DAILY (1/D), ORAL; SEE IMAGE
     Route: 048
     Dates: start: 20060901

REACTIONS (9)
  - AMNESIA [None]
  - FALL [None]
  - FEELING ABNORMAL [None]
  - GRAND MAL CONVULSION [None]
  - LOSS OF CONSCIOUSNESS [None]
  - SEDATION [None]
  - SOMNOLENCE [None]
  - TONGUE BITING [None]
  - TREMOR [None]
